FAERS Safety Report 24569452 (Version 1)
Quarter: 2024Q4

REPORT INFORMATION
  Report Type: Spontaneous
  Country: US (occurrence: None)
  Receive Date: 20241030
  Receipt Date: 20241030
  Transmission Date: 20250115
  Serious: Yes (Other)
  Sender: Public
  Company Number: None

PATIENT
  Age: 41 Year
  Sex: Male

DRUGS (2)
  1. AMPHETAMINE\DEXTROAMPHETAMINE [Suspect]
     Active Substance: AMPHETAMINE\DEXTROAMPHETAMINE
     Indication: Attention deficit hyperactivity disorder
     Dosage: 10 MG DAILY ORAL
     Route: 048
     Dates: start: 20241030, end: 20241030
  2. METHYLPHENIDATE [Suspect]
     Active Substance: METHYLPHENIDATE
     Indication: Attention deficit hyperactivity disorder
     Dosage: 27 MG DAILY ORAL
     Route: 048
     Dates: start: 20240924, end: 20241001

REACTIONS (4)
  - Priapism [None]
  - Pruritus [None]
  - Pruritus [None]
  - Sneezing [None]

NARRATIVE: CASE EVENT DATE: 20241030
